FAERS Safety Report 7676972-9 (Version None)
Quarter: 2011Q3

REPORT INFORMATION
  Report Type: 
  Country: None (occurrence: None)
  Receive Date: 20110810
  Receipt Date: 20110810
  Transmission Date: 20111222
  Serious: Yes (Hospitalization)
  Sender: FDA-Public Use
  Company Number: None

PATIENT
  Age: 68 Year
  Sex: Male

DRUGS (11)
  1. HYDROCHLOROTHIAZIDE [Concomitant]
  2. KETOCONAZOLE [Suspect]
     Indication: PROSTATE CANCER
     Dosage: 200MG PO TID QD
     Route: 048
     Dates: start: 20110302, end: 20110418
  3. METOPROLOL TARTRATE [Concomitant]
  4. LASIX [Concomitant]
  5. LISINOPRIL [Concomitant]
  6. HYDROCORTISONE [Suspect]
     Indication: PROSTATE CANCER
     Dosage: 20 MG PO QAM, 10MG PO QP
     Route: 048
     Dates: start: 20110302, end: 20110418
  7. CELEXA [Concomitant]
  8. NORCO [Concomitant]
  9. BUPROPION HCL [Concomitant]
  10. KLONOPIN [Concomitant]
  11. PRAVACHOL [Concomitant]

REACTIONS (1)
  - HYPERKALAEMIA [None]
